FAERS Safety Report 7763103-X (Version None)
Quarter: 2011Q3

REPORT INFORMATION
  Report Type: 
  Country: None (occurrence: None)
  Receive Date: 20110920
  Receipt Date: 20110915
  Transmission Date: 20111222
  Serious: Yes (Life-Threatening, Hospitalization)
  Sender: FDA-Public Use
  Company Number: DE-CEPHALON-2011004999

PATIENT
  Sex: Male
  Weight: 75 kg

DRUGS (4)
  1. TREANDA [Suspect]
     Route: 042
     Dates: start: 20110902
  2. CARBAMAZEPINE [Concomitant]
     Dates: start: 20010101
  3. PREGABALIN [Concomitant]
     Dates: start: 20110801
  4. RITUXIMAB [Suspect]
     Route: 042
     Dates: start: 20110901

REACTIONS (1)
  - SKIN HAEMORRHAGE [None]
